FAERS Safety Report 18772237 (Version 4)
Quarter: 2022Q2

REPORT INFORMATION
  Report Type: Report from Study
  Country: FR (occurrence: FR)
  Receive Date: 20210122
  Receipt Date: 20220503
  Transmission Date: 20220721
  Serious: Yes (Hospitalization, Other)
  Sender: FDA-Public Use
  Company Number: FR-SA-SAC20210119000102

PATIENT
  Age: 68 Year
  Sex: Male
  Weight: 63 kg

DRUGS (3)
  1. CABAZITAXEL [Suspect]
     Active Substance: CABAZITAXEL
     Indication: Prostate cancer
     Dosage: 40 MG, QCY
     Route: 042
     Dates: start: 20201228, end: 20201228
  2. PREDNISOLONE [Suspect]
     Active Substance: PREDNISOLONE
     Indication: Prostate cancer
     Dosage: 10 MG (CUMULATIVE DOSE: 220 MG),
     Route: 048
     Dates: start: 20201228, end: 20210118
  3. TRIPTORELIN ACETATE [Suspect]
     Active Substance: TRIPTORELIN ACETATE
     Indication: Prostate cancer
     Dosage: 11.25 MG
     Route: 042
     Dates: start: 20201118, end: 20201118

REACTIONS (3)
  - Intervertebral discitis [Unknown]
  - Arthritis [Recovered/Resolved]
  - Syncope [Not Recovered/Not Resolved]

NARRATIVE: CASE EVENT DATE: 20210106
